FAERS Safety Report 8210405-9 (Version None)
Quarter: 2012Q1

REPORT INFORMATION
  Report Type: 
  Country: None (occurrence: None)
  Receive Date: 20120314
  Receipt Date: 20120127
  Transmission Date: 20120608
  Serious: No
  Sender: FDA-Public Use
  Company Number: US-ASTRAZENECA-2012SE06091

PATIENT
  Age: 70 Year
  Sex: Male

DRUGS (2)
  1. ANTIDIABETIC MEDICATION [Concomitant]
     Indication: DIABETES MELLITUS
  2. TOPROL-XL [Suspect]
     Indication: BLOOD PRESSURE
     Route: 048

REACTIONS (3)
  - HEADACHE [None]
  - PAIN [None]
  - ABDOMINAL DISCOMFORT [None]
